FAERS Safety Report 23980967 (Version 1)
Quarter: 2024Q2

REPORT INFORMATION
  Report Type: Spontaneous
  Country: CN (occurrence: CN)
  Receive Date: 20240617
  Receipt Date: 20240617
  Transmission Date: 20240716
  Serious: Yes (Hospitalization, Other)
  Sender: FDA-Public Use
  Company Number: CN-SA-2024SA176756

PATIENT
  Sex: Male
  Weight: 40 kg

DRUGS (7)
  1. CAPECITABINE [Suspect]
     Active Substance: CAPECITABINE
     Indication: Oesophageal carcinoma
     Dosage: 1.0 G, BID (DAYS 1-14) (TABLET)
     Dates: start: 20200906, end: 20210219
  2. CAPECITABINE [Suspect]
     Active Substance: CAPECITABINE
     Indication: Metastases to pancreas
     Dosage: 1.0 G, BID (FIRST TO EIGHTH DAYS) (TABLET)
     Dates: start: 20220124, end: 20220212
  3. CAPECITABINE [Suspect]
     Active Substance: CAPECITABINE
     Dosage: UNK, QCY
     Dates: start: 20220305
  4. OXALIPLATIN [Suspect]
     Active Substance: OXALIPLATIN
     Indication: Oesophageal carcinoma
     Dosage: 150 MG, QCY (DAY 1, ONCE EVERY 21 DAYS)
     Route: 041
     Dates: start: 20200906, end: 20210219
  5. OXALIPLATIN [Suspect]
     Active Substance: OXALIPLATIN
     Indication: Metastases to pancreas
     Dosage: 150 MG, QCY (ON THE FIRST DAY)
     Route: 042
     Dates: start: 20220124, end: 20220212
  6. OXALIPLATIN [Suspect]
     Active Substance: OXALIPLATIN
     Dosage: UNK UNK, QCY
     Dates: start: 20220305
  7. LEVOAMLODIPINE BESYLATE [Concomitant]
     Indication: Hypertension
     Dosage: 2.5 MG, QD
     Route: 048

REACTIONS (8)
  - Cardiac failure [Recovering/Resolving]
  - Fatigue [Recovering/Resolving]
  - Dyspnoea [Recovering/Resolving]
  - Oedema peripheral [Recovering/Resolving]
  - Palpitations [Recovering/Resolving]
  - Myelosuppression [Recovering/Resolving]
  - Hypoaesthesia [Recovering/Resolving]
  - Discomfort [Recovering/Resolving]

NARRATIVE: CASE EVENT DATE: 20220201
